FAERS Safety Report 9471800 (Version 2)
Quarter: 2013Q4

REPORT INFORMATION
  Report Type: Spontaneous
  Country: CH (occurrence: CH)
  Receive Date: 20130822
  Receipt Date: 20131023
  Transmission Date: 20140711
  Serious: Yes (Other)
  Sender: FDA-Public Use
  Company Number: CH-ASTRAZENECA-2013SE63829

PATIENT
  Age: 72 Year
  Sex: Female

DRUGS (29)
  1. REMERON [Concomitant]
     Dates: start: 20130204, end: 20130218
  2. PANTOZOL [Concomitant]
     Dates: start: 2012
  3. ACETYLSALICYLIC ACID [Concomitant]
     Dates: start: 2010, end: 20130205
  4. TENORMIN [Concomitant]
     Dates: start: 2010
  5. TORASEMID [Concomitant]
     Dates: start: 2010
  6. VASCORD HCT [Concomitant]
     Dates: start: 2013
  7. SPIRICORT [Concomitant]
     Dates: start: 20130316, end: 20130320
  8. CIPRALEX [Concomitant]
     Dates: start: 20130318
  9. SEROQUEL [Suspect]
     Indication: DELUSIONAL DISORDER, UNSPECIFIED TYPE
     Route: 048
     Dates: start: 20130120, end: 20130129
  10. SEROQUEL [Suspect]
     Indication: DEPRESSION
     Route: 048
     Dates: start: 20130120, end: 20130129
  11. SEROQUEL [Suspect]
     Indication: DEPENDENCE
     Route: 048
     Dates: start: 20130120, end: 20130129
  12. SEROQUEL [Suspect]
     Indication: DELUSIONAL DISORDER, UNSPECIFIED TYPE
     Route: 048
     Dates: start: 20130129, end: 20130130
  13. SEROQUEL [Suspect]
     Indication: DEPRESSION
     Route: 048
     Dates: start: 20130129, end: 20130130
  14. SEROQUEL [Suspect]
     Indication: DEPENDENCE
     Route: 048
     Dates: start: 20130129, end: 20130130
  15. SEROQUEL [Suspect]
     Indication: DELUSIONAL DISORDER, UNSPECIFIED TYPE
     Dosage: 50MG INCREASED TWICE
     Route: 048
     Dates: start: 20130204
  16. SEROQUEL [Suspect]
     Indication: DEPRESSION
     Dosage: 50MG INCREASED TWICE
     Route: 048
     Dates: start: 20130204
  17. SEROQUEL [Suspect]
     Indication: DEPENDENCE
     Dosage: 50MG INCREASED TWICE
     Route: 048
     Dates: start: 20130204
  18. SEROQUEL [Suspect]
     Indication: DELUSIONAL DISORDER, UNSPECIFIED TYPE
     Dosage: INCREASED
     Route: 048
     Dates: end: 20130218
  19. SEROQUEL [Suspect]
     Indication: DEPRESSION
     Dosage: INCREASED
     Route: 048
     Dates: end: 20130218
  20. SEROQUEL [Suspect]
     Indication: DEPENDENCE
     Dosage: INCREASED
     Route: 048
     Dates: end: 20130218
  21. SEROQUEL [Suspect]
     Indication: DELUSIONAL DISORDER, UNSPECIFIED TYPE
     Route: 048
     Dates: start: 20130213, end: 20130218
  22. SEROQUEL [Suspect]
     Indication: DEPRESSION
     Route: 048
     Dates: start: 20130213, end: 20130218
  23. SEROQUEL [Suspect]
     Indication: DEPENDENCE
     Route: 048
     Dates: start: 20130213, end: 20130218
  24. ABILIFY [Suspect]
     Route: 065
     Dates: start: 20130219, end: 20130222
  25. ABILIFY [Suspect]
     Route: 065
     Dates: start: 20130222
  26. ABILIFY [Suspect]
     Route: 065
     Dates: start: 20130302, end: 20130307
  27. FLUCTINE [Concomitant]
     Dates: start: 2010, end: 20130306
  28. TEMESTA [Concomitant]
     Dates: start: 20130125
  29. REMERON [Concomitant]
     Dates: start: 2010

REACTIONS (2)
  - Neutropenia [Recovered/Resolved]
  - Thrombocytopenia [Recovered/Resolved]
